FAERS Safety Report 8497590-9 (Version None)
Quarter: 2012Q3

REPORT INFORMATION
  Report Type: 
  Country: None (occurrence: None)
  Receive Date: 20120709
  Receipt Date: 20120604
  Transmission Date: 20120928
  Serious: No
  Sender: FDA-Public Use
  Company Number: US-AMGEN-USASP2011020240

PATIENT
  Age: 44 Year
  Sex: Male
  Weight: 100.68 kg

DRUGS (2)
  1. ENBREL [Suspect]
     Indication: PSORIATIC ARTHROPATHY
     Dosage: 50 MG, QWK
     Route: 058
     Dates: start: 20110322, end: 20110419
  2. ENBREL [Suspect]
     Dosage: 50 MG, QWK
     Dates: start: 20110405

REACTIONS (6)
  - SKIN LESION [None]
  - INJECTION SITE MASS [None]
  - INJECTION SITE ERYTHEMA [None]
  - INJECTION SITE REACTION [None]
  - INJECTION SITE PAIN [None]
  - INJECTION SITE PRURITUS [None]
